APPROVED DRUG PRODUCT: VUITY
Active Ingredient: PILOCARPINE HYDROCHLORIDE
Strength: 1.25%
Dosage Form/Route: SOLUTION/DROPS;OPHTHALMIC
Application: N214028 | Product #001 | TE Code: AB
Applicant: ABBVIE INC
Approved: Oct 28, 2021 | RLD: Yes | RS: Yes | Type: RX

PATENTS:
Patent 10610518 | Expires: Apr 24, 2039
Patent 10610518 | Expires: Apr 24, 2039
Patent 11285134 | Expires: Apr 24, 2039
Patent 11285134 | Expires: Apr 24, 2039
Patent 11285134 | Expires: Apr 24, 2039
Patent 10610518 | Expires: Apr 24, 2039

EXCLUSIVITY:
Code: D-187 | Date: Mar 28, 2026